FAERS Safety Report 10860841 (Version 3)
Quarter: 2015Q2

REPORT INFORMATION
  Report Type: Spontaneous
  Country: US (occurrence: US)
  Receive Date: 20150224
  Receipt Date: 20150423
  Transmission Date: 20150821
  Serious: Yes (Other)
  Sender: FDA-Public Use
  Company Number: US-JNJFOC-20150210549

PATIENT
  Age: 71 Year
  Sex: Male
  Weight: 70.31 kg

DRUGS (10)
  1. DEVIL^S CLAW [Concomitant]
     Active Substance: HERBALS
     Indication: ARTHROPATHY
     Route: 065
  2. COQ10 [Concomitant]
     Active Substance: UBIDECARENONE
     Indication: CARDIAC DISORDER
     Route: 065
  3. NEOSPORIN [Suspect]
     Active Substance: BACITRACIN ZINC\NEOMYCIN SULFATE\POLYMYXIN B SULFATE
     Indication: ANIMAL BITE
     Dosage: AS NEEDED
     Route: 061
     Dates: start: 20150206, end: 20150209
  4. BANDAGE [Suspect]
     Active Substance: BENZALKONIUM CHLORIDE
     Indication: ANIMAL BITE
     Dosage: AS NEEDED
     Route: 061
     Dates: start: 20150206, end: 20150209
  5. BABY ASPIRIN [Concomitant]
     Active Substance: ASPIRIN
     Indication: ARTHRITIS
     Route: 065
  6. MAGNESIUM CITRATE. [Concomitant]
     Active Substance: MAGNESIUM CITRATE
     Indication: ROUTINE HEALTH MAINTENANCE
     Route: 065
  7. BABY ASPIRIN [Concomitant]
     Active Substance: ASPIRIN
     Indication: ANTICOAGULANT THERAPY
     Route: 065
  8. SAW  PALMETTO [Concomitant]
     Active Substance: SAW PALMETTO
     Indication: PROSTATIC DISORDER
     Route: 065
  9. GLUCOSAMINE CHONDROITIN MSM [Concomitant]
     Route: 065
  10. INFLAMMA-BLOX [Concomitant]
     Route: 065

REACTIONS (4)
  - Pain in extremity [Recovered/Resolved]
  - Application site vesicles [Recovered/Resolved]
  - Cellulitis [Recovered/Resolved]
  - Application site hypersensitivity [Recovered/Resolved]

NARRATIVE: CASE EVENT DATE: 20150209
